FAERS Safety Report 8395624-3 (Version None)
Quarter: 2012Q2

REPORT INFORMATION
  Report Type: 
  Country: None (occurrence: None)
  Receive Date: 20120530
  Receipt Date: 20111207
  Transmission Date: 20120825
  Serious: No
  Sender: FDA-Public Use
  Company Number: US-GLAXOSMITHKLINE-A0957132A

PATIENT
  Age: 51 Year
  Sex: Female

DRUGS (2)
  1. VENTOLIN [Suspect]
     Indication: COUGH
     Dosage: 2PUFF FOUR TIMES PER DAY
     Route: 055
     Dates: start: 20111130, end: 20111201
  2. ADVAIR DISKUS 100/50 [Concomitant]

REACTIONS (2)
  - DYSPNOEA [None]
  - COUGH [None]
